FAERS Safety Report 6993939-4 (Version None)
Quarter: 2010Q3

REPORT INFORMATION
  Report Type: 
  Country: None (occurrence: None)
  Receive Date: 20100917
  Receipt Date: 20100412
  Transmission Date: 20110219
  Serious: Yes (Other)
  Sender: FDA-Public Use
  Company Number: US-ASTRAZENECA-2009UW16479

PATIENT
  Sex: Male

DRUGS (4)
  1. SEROQUEL [Suspect]
     Route: 048
     Dates: start: 20090101
  2. RISPERDAL [Concomitant]
     Route: 048
     Dates: start: 20070101
  3. DEPAKOTE [Concomitant]
     Dosage: 500 MG TO 2000 MG
     Route: 048
     Dates: start: 20070101
  4. ABILIFY [Concomitant]
     Dates: start: 20090101

REACTIONS (2)
  - DIABETIC KETOACIDOSIS [None]
  - TYPE 2 DIABETES MELLITUS [None]
